FAERS Safety Report 7343327-6 (Version None)
Quarter: 2011Q1

REPORT INFORMATION
  Report Type: 
  Country: None (occurrence: None)
  Receive Date: 20110310
  Receipt Date: 20110310
  Transmission Date: 20110831
  Serious: Yes (Hospitalization, Other)
  Sender: FDA-Public Use
  Company Number: DE-ABBOTT-10P-062-0678990-00

PATIENT
  Sex: Female
  Weight: 53 kg

DRUGS (2)
  1. HUMIRA [Suspect]
     Indication: PSORIATIC ARTHROPATHY
     Route: 058
     Dates: start: 20100503, end: 20100920
  2. HUMIRA [Suspect]
     Dates: start: 20110224

REACTIONS (3)
  - NEOPLASM [None]
  - ADENOMYOSIS [None]
  - LEIOMYOMA [None]
